FAERS Safety Report 18908764 (Version 1)
Quarter: 2021Q1

REPORT INFORMATION
  Report Type: Other
  Country: US (occurrence: US)
  Receive Date: 20210218
  Receipt Date: 20210218
  Transmission Date: 20210420
  Serious: Yes (Hospitalization, Other)
  Sender: FDA-Public Use
  Company Number: US-ROCHE-2764568

PATIENT
  Age: 59 Year
  Sex: Male
  Weight: 96.25 kg

DRUGS (1)
  1. OCREVUS [Suspect]
     Active Substance: OCRELIZUMAB
     Indication: RELAPSING-REMITTING MULTIPLE SCLEROSIS
     Dosage: DATE OF TREATMENT: 13/APR/2018, 27/APR/2018, 26/OCT/2018, 26/APR/2019, 13/SEP/2019, 25/OCT/2019, 28/
     Route: 042
     Dates: start: 2018, end: 202005

REACTIONS (8)
  - Post lumbar puncture syndrome [Recovered/Resolved]
  - Hypertension [Not Recovered/Not Resolved]
  - Neuralgia [Not Recovered/Not Resolved]
  - Staphylococcal infection [Recovered/Resolved]
  - Gait inability [Recovered/Resolved]
  - Headache [Not Recovered/Not Resolved]
  - Spinal deformity [Not Recovered/Not Resolved]
  - Diabetes mellitus [Not Recovered/Not Resolved]

NARRATIVE: CASE EVENT DATE: 202001
